FAERS Safety Report 18915675 (Version 1)
Quarter: 2021Q1

REPORT INFORMATION
  Report Type: Report from Study
  Country: US (occurrence: US)
  Receive Date: 20210219
  Receipt Date: 20210219
  Transmission Date: 20210420
  Serious: Yes (Other)
  Sender: FDA-Public Use
  Company Number: US-JNJFOC-20210220823

PATIENT
  Age: 48 Year
  Sex: Female

DRUGS (2)
  1. SPRAVATO [Suspect]
     Active Substance: ESKETAMINE
     Indication: DEPRESSION
     Dosage: 56MG, 7 TOTAL DOSES
     Route: 045
     Dates: start: 20210112, end: 20210203
  2. SPRAVATO [Suspect]
     Active Substance: ESKETAMINE
     Dates: start: 20210204, end: 20210204

REACTIONS (4)
  - Decreased appetite [Recovered/Resolved]
  - Sedation [Recovered/Resolved]
  - Nausea [Recovered/Resolved]
  - Headache [Recovered/Resolved]

NARRATIVE: CASE EVENT DATE: 20210128
